FAERS Safety Report 19702964 (Version 2)
Quarter: 2021Q3

REPORT INFORMATION
  Report Type: Report from Study
  Country: JP (occurrence: JP)
  Receive Date: 20210816
  Receipt Date: 20210830
  Transmission Date: 20211014
  Serious: Yes (Death)
  Sender: FDA-Public Use
  Company Number: JP-JNJFOC-20190731978

PATIENT
  Age: 66 Year
  Sex: Female
  Weight: 32.9 kg

DRUGS (41)
  1. SIRTURO [Suspect]
     Active Substance: BEDAQUILINE FUMARATE
     Route: 048
     Dates: start: 20190318, end: 20191021
  2. AMIKACIN SULFATE. [Concomitant]
     Active Substance: AMIKACIN SULFATE
     Indication: PULMONARY TUBERCULOSIS
     Route: 065
     Dates: start: 20190304, end: 2019
  3. MEROPEN [Concomitant]
     Active Substance: MEROPENEM
     Indication: PULMONARY TUBERCULOSIS
     Route: 065
     Dates: start: 20190520, end: 20190611
  4. DIAMOX SEQUELS [Concomitant]
     Active Substance: ACETAZOLAMIDE
     Indication: CHRONIC RESPIRATORY FAILURE
     Route: 048
     Dates: start: 20191009, end: 20191021
  5. TAZOBACTAM SODIUM/PIPERACILLIN SODIUM [Concomitant]
     Active Substance: PIPERACILLIN SODIUM\TAZOBACTAM SODIUM
     Indication: PNEUMONIA
     Route: 065
     Dates: start: 20191017, end: 20191021
  6. INTRALIPOS [Concomitant]
     Active Substance: SOYBEAN OIL
     Route: 065
     Dates: start: 20191009, end: 20191021
  7. SOLDACTONE [Concomitant]
     Active Substance: CANRENOATE POTASSIUM
     Indication: CARDIAC FAILURE
     Route: 065
     Dates: start: 20191009, end: 20191021
  8. DELAMANID [Concomitant]
     Active Substance: DELAMANID
     Indication: PULMONARY TUBERCULOSIS
     Route: 048
     Dates: start: 20190304, end: 20191008
  9. DELAMANID [Concomitant]
     Active Substance: DELAMANID
     Indication: PULMONARY TUBERCULOSIS
     Route: 048
     Dates: start: 20191009, end: 20191021
  10. LEVOFLOXACIN HEMIHYDRATE [Concomitant]
     Active Substance: LEVOFLOXACIN
     Indication: PULMONARY TUBERCULOSIS
     Route: 048
     Dates: start: 20190304, end: 20191021
  11. FULCALIQ [Concomitant]
     Active Substance: AMINO ACIDS\CARBOHYDRATES\ELECTROLYTES NOS\VITAMINS
     Indication: MALNUTRITION
     Route: 065
  12. LINEZOLID. [Suspect]
     Active Substance: LINEZOLID
     Indication: PULMONARY TUBERCULOSIS
     Route: 048
     Dates: start: 20190313, end: 20190630
  13. LEXAPRO [Concomitant]
     Active Substance: ESCITALOPRAM OXALATE
     Indication: INSOMNIA
     Route: 048
  14. ESOMEPRAZOLE MAGNESIUM HYDRATE [Concomitant]
     Active Substance: ESOMEPRAZOLE MAGNESIUM
     Indication: GASTROOESOPHAGEAL REFLUX DISEASE
     Route: 048
     Dates: start: 20190613, end: 20190815
  15. SENNOSIDE [SENNOSIDE A+B CALCIUM] [Concomitant]
     Active Substance: SENNOSIDES A AND B
     Indication: CONSTIPATION
     Route: 048
     Dates: start: 20191009, end: 20191021
  16. AMINO ACIDS NOS;COPPER;ELECTROLYTES NOS;GLUCOSE;IODINE;IRON;MANGANESE; [Concomitant]
     Indication: MALNUTRITION
     Route: 065
     Dates: start: 20191009, end: 20191021
  17. AMIKACIN SULFATE. [Concomitant]
     Active Substance: AMIKACIN SULFATE
     Indication: PULMONARY TUBERCULOSIS
     Route: 065
     Dates: start: 20190521, end: 20190611
  18. TUBERMIN [Concomitant]
     Active Substance: ETHIONAMIDE
     Indication: PULMONARY TUBERCULOSIS
     Route: 048
     Dates: start: 20191009, end: 20191021
  19. MEROPEN [Concomitant]
     Active Substance: MEROPENEM
     Indication: PULMONARY TUBERCULOSIS
     Route: 065
     Dates: start: 20190304, end: 2019
  20. LIXIANA [Concomitant]
     Active Substance: EDOXABAN TOSYLATE
     Indication: DEEP VEIN THROMBOSIS
     Route: 048
     Dates: end: 20191021
  21. MECOBALAMIN [Concomitant]
     Active Substance: METHYLCOBALAMIN
     Indication: NEUROPATHY PERIPHERAL
     Route: 048
     Dates: start: 20190520
  22. FUROSEMIDE. [Concomitant]
     Active Substance: FUROSEMIDE
     Indication: CARDIAC FAILURE
     Route: 065
     Dates: start: 20191009, end: 20191021
  23. LINEZOLID. [Suspect]
     Active Substance: LINEZOLID
     Indication: PULMONARY TUBERCULOSIS
     Route: 048
     Dates: start: 20190304, end: 20190312
  24. LAMPREN [Concomitant]
     Active Substance: CLOFAZIMINE
     Indication: PULMONARY TUBERCULOSIS
     Route: 048
     Dates: start: 20190304
  25. MAGNESIUM OXIDE. [Concomitant]
     Active Substance: MAGNESIUM OXIDE
     Indication: GASTRITIS
     Route: 048
  26. MAGNESIUM OXIDE. [Concomitant]
     Active Substance: MAGNESIUM OXIDE
     Indication: CONSTIPATION
     Route: 048
     Dates: start: 20190520
  27. RUPAFIN [Concomitant]
     Active Substance: RUPATADINE FUMARATE
     Indication: RHINITIS ALLERGIC
     Route: 048
     Dates: start: 20191009, end: 20191021
  28. SIRTURO [Suspect]
     Active Substance: BEDAQUILINE FUMARATE
     Indication: PULMONARY TUBERCULOSIS
     Route: 048
     Dates: start: 20190304, end: 20190317
  29. MUCOSTA [Concomitant]
     Active Substance: REBAMIPIDE
     Indication: GASTRITIS
     Route: 048
  30. URSODEOXYCHOLIC ACID [Concomitant]
     Active Substance: URSODIOL
     Indication: HEPATITIS C
     Route: 048
     Dates: start: 20190528, end: 20190808
  31. OXYGEN. [Concomitant]
     Active Substance: OXYGEN
     Indication: CHRONIC RESPIRATORY FAILURE
     Dosage: UNKNOWN
     Route: 055
     Dates: start: 20190520
  32. TUBERMIN [Concomitant]
     Active Substance: ETHIONAMIDE
     Indication: PULMONARY TUBERCULOSIS
     Route: 048
     Dates: start: 20190701, end: 20191008
  33. SALIVEHT [Concomitant]
     Indication: SJOGREN^S SYNDROME
     Route: 049
     Dates: start: 20190318
  34. MUCOSOLVAN L [Concomitant]
     Active Substance: AMBROXOL HYDROCHLORIDE
     Indication: CHRONIC RESPIRATORY FAILURE
     Route: 048
     Dates: start: 20191009, end: 20191021
  35. MIYA?BM [Concomitant]
     Active Substance: CLOSTRIDIUM BUTYRICUM SPORES STRAIN M-55
     Indication: CONSTIPATION
     Route: 048
     Dates: start: 20191009, end: 20191021
  36. L?CARTIN FF [Concomitant]
     Active Substance: LEVOCARNITINE
     Indication: CARNITINE DEFICIENCY
     Route: 048
     Dates: start: 20191009, end: 20191021
  37. LEVOCETIRIZINE DIHYDROCHLORIDE. [Concomitant]
     Active Substance: LEVOCETIRIZINE DIHYDROCHLORIDE
     Indication: RHINITIS ALLERGIC
     Route: 048
     Dates: start: 20190520
  38. NAUZELIN [Concomitant]
     Active Substance: DOMPERIDONE
     Indication: GASTRITIS
     Route: 048
     Dates: start: 20190520, end: 20191021
  39. FAMOTIDINE. [Concomitant]
     Active Substance: FAMOTIDINE
     Indication: GASTROOESOPHAGEAL REFLUX DISEASE
     Route: 048
     Dates: start: 20190816
  40. LULLAN [Concomitant]
     Active Substance: PEROSPIRONE HYDROCHLORIDE
     Indication: SCHIZOPHRENIA
     Route: 048
     Dates: start: 20191009, end: 20191021
  41. LANSOPRAZOLE. [Concomitant]
     Active Substance: LANSOPRAZOLE
     Indication: GASTROOESOPHAGEAL REFLUX DISEASE
     Route: 048
     Dates: start: 20191009, end: 20191021

REACTIONS (2)
  - Hypoaesthesia [Not Recovered/Not Resolved]
  - Pneumonia [Fatal]

NARRATIVE: CASE EVENT DATE: 20190313
